FAERS Safety Report 5793551-9 (Version None)
Quarter: 2008Q2

REPORT INFORMATION
  Report Type: 
  Country: None (occurrence: None)
  Receive Date: 20080627
  Receipt Date: 20080620
  Transmission Date: 20081010
  Serious: Yes (Hospitalization)
  Sender: FDA-Public Use
  Company Number: FR-JNJFOC-20080604758

PATIENT
  Sex: Female

DRUGS (5)
  1. REMINYL LP [Suspect]
     Indication: DEMENTIA ALZHEIMER'S TYPE
     Route: 048
  2. FORLAX [Concomitant]
     Indication: CONSTIPATION
     Route: 048
  3. LEVOTHYROXINE SODIUM [Concomitant]
     Indication: HYPOTHYROIDISM
     Route: 048
  4. DEROXAT [Concomitant]
     Indication: DEPRESSION
     Route: 048
  5. CORTANCYL [Concomitant]
     Indication: INFLAMMATION
     Route: 048

REACTIONS (3)
  - BRADYARRHYTHMIA [None]
  - BUNDLE BRANCH BLOCK LEFT [None]
  - HAEMORRHAGIC STROKE [None]
